FAERS Safety Report 5348178-X (Version None)
Quarter: 2007Q2

REPORT INFORMATION
  Report Type: 
  Country: None (occurrence: None)
  Receive Date: 20070606
  Receipt Date: 20070522
  Transmission Date: 20071010
  Serious: Yes (Hospitalization)
  Sender: FDA-Public Use
  Company Number: JP-GENENTECH-242406

PATIENT
  Sex: Male

DRUGS (23)
  1. BEVACIZUMAB [Suspect]
     Indication: RECTAL CANCER
     Dosage: 273 MG, QD
     Route: 042
     Dates: start: 20060116, end: 20070515
  2. OXALIPLATIN [Suspect]
     Indication: RECTAL CANCER
     Dosage: 132 MG, QD
     Route: 042
     Dates: start: 20060116, end: 20070515
  3. LEVOLEUCOVORIN CALCIUM [Suspect]
     Indication: RECTAL CANCER
     Dosage: 155 MG, QD
     Route: 042
     Dates: start: 20060116, end: 20070516
  4. FLUOROURACIL [Suspect]
     Indication: RECTAL CANCER
     Dosage: 620 MG, QD
     Route: 042
     Dates: start: 20060116, end: 20070516
  5. NORVASC [Concomitant]
     Indication: DRUG USE FOR UNKNOWN INDICATION
     Dates: end: 20060404
  6. ENALAPRIL MALEATE [Concomitant]
     Indication: DRUG USE FOR UNKNOWN INDICATION
  7. MAGNESIUM OXIDE [Concomitant]
     Indication: DRUG USE FOR UNKNOWN INDICATION
  8. IOPAMIDOL [Concomitant]
     Indication: DRUG USE FOR UNKNOWN INDICATION
     Dates: start: 20060227
  9. AMLODIPINE BESYLATE [Concomitant]
     Indication: DRUG USE FOR UNKNOWN INDICATION
     Dosage: UNK, UNK
     Dates: start: 20060404
  10. CEFCAPENE PIVOXIL HYDROCHLORIDE [Concomitant]
     Indication: DRUG USE FOR UNKNOWN INDICATION
     Dates: start: 20070306, end: 20070309
  11. LOXONIN [Concomitant]
     Indication: DRUG USE FOR UNKNOWN INDICATION
     Dosage: UNK, UNK
     Dates: start: 20070306, end: 20070309
  12. BENZALKONIUM CHLORIDE [Concomitant]
     Indication: RASH
     Dates: start: 20060201, end: 20060418
  13. LOPEMIN [Concomitant]
     Indication: DIARRHOEA
     Dosage: UNK, UNK
     Dates: start: 20060318, end: 20060320
  14. BIOFERMIN [Concomitant]
     Indication: DIARRHOEA
     Dates: start: 20060317, end: 20060320
  15. ZINC OXIDE [Concomitant]
     Indication: MALARIA
     Dates: start: 20060523, end: 20060530
  16. ACETIC ACID [Concomitant]
     Indication: RASH
     Dates: start: 20060523, end: 20060530
  17. AMINOBENZOIC ACID [Concomitant]
     Indication: RASH
     Dates: start: 20060523, end: 20060530
  18. RESTAMIN [Concomitant]
     Indication: PRURITUS
     Dates: start: 20060613, end: 20060620
  19. BETAMETHASONE/GENTAMICIN [Concomitant]
     Indication: RASH
     Dates: start: 20060622, end: 20060627
  20. ALLELOCK [Concomitant]
     Indication: RASH
     Dates: start: 20060705
  21. ANTACID (UNK INGREDIENTS) [Concomitant]
     Indication: NAUSEA
     Dates: start: 20061206
  22. SOLU-CORTEF [Concomitant]
     Indication: RASH
     Dates: start: 20070130
  23. CHLOR-TRIMETON [Concomitant]
     Indication: RASH
     Dates: start: 20070319

REACTIONS (1)
  - BLOOD CREATININE INCREASED [None]
